FAERS Safety Report 20135898 (Version 2)
Quarter: 2021Q4

REPORT INFORMATION
  Report Type: Spontaneous
  Country: CN (occurrence: CN)
  Receive Date: 20211201
  Receipt Date: 20211216
  Transmission Date: 20220303
  Serious: Yes (Other)
  Sender: FDA-Public Use
  Company Number: CN-PFIZER INC-202101630256

PATIENT
  Age: 72 Year
  Sex: Male

DRUGS (3)
  1. LINEZOLID [Suspect]
     Active Substance: LINEZOLID
     Indication: Sepsis
     Dosage: 600 MG, 2X/DAY
     Route: 041
     Dates: start: 20211008, end: 20211015
  2. LINEZOLID [Suspect]
     Active Substance: LINEZOLID
     Indication: Anti-infective therapy
  3. AVIBACTAM SODIUM\CEFTAZIDIME [Concomitant]
     Active Substance: AVIBACTAM SODIUM\CEFTAZIDIME
     Indication: Anti-infective therapy
     Dosage: 2.5 G, 3X/DAY
     Dates: start: 20211008

REACTIONS (3)
  - Hepatic function abnormal [Not Recovered/Not Resolved]
  - Renal failure [Unknown]
  - Anuria [Unknown]

NARRATIVE: CASE EVENT DATE: 20211015
